FAERS Safety Report 5634542-8 (Version None)
Quarter: 2008Q1

REPORT INFORMATION
  Report Type: 
  Country: None (occurrence: None)
  Receive Date: 20080222
  Receipt Date: 20080220
  Transmission Date: 20080703
  Serious: Yes (Death)
  Sender: FDA-Public Use
  Company Number: PHMT2008CA00534

PATIENT

DRUGS (1)
  1. RASILEZ [Suspect]

REACTIONS (1)
  - DEATH [None]
